FAERS Safety Report 23719019 (Version 1)
Quarter: 2024Q2

REPORT INFORMATION
  Report Type: Spontaneous
  Country: US (occurrence: US)
  Receive Date: 20240408
  Receipt Date: 20240408
  Transmission Date: 20240716
  Serious: No
  Sender: FDA-Public Use
  Company Number: US-INSUD PHARMA-2403US02592

PATIENT
  Sex: Male

DRUGS (4)
  1. RAMELTEON [Suspect]
     Active Substance: RAMELTEON
     Indication: Insomnia
     Dosage: 30 MINUTES BEFORE BEDTIME, RELIGIOUSLY AT 10 PM
     Route: 048
     Dates: start: 202403
  2. XANAX [Concomitant]
     Active Substance: ALPRAZOLAM
     Indication: Product used for unknown indication
     Dosage: UNKNOWN
     Route: 048
     Dates: start: 20240320
  3. UNSPECIFIED INGREDIENT [Concomitant]
     Active Substance: UNSPECIFIED INGREDIENT
  4. UNSPECIFIED INGREDIENT [Concomitant]
     Active Substance: UNSPECIFIED INGREDIENT

REACTIONS (2)
  - Drug ineffective [Not Recovered/Not Resolved]
  - Therapeutic product effect incomplete [Not Recovered/Not Resolved]

NARRATIVE: CASE EVENT DATE: 20240301
